FAERS Safety Report 7937792-0 (Version None)
Quarter: 2011Q4

REPORT INFORMATION
  Report Type: 
  Country: None (occurrence: None)
  Receive Date: 20111123
  Receipt Date: 20111118
  Transmission Date: 20120403
  Serious: Yes (Other)
  Sender: FDA-Public Use
  Company Number: GB-AMGEN-GBRCT2011061233

PATIENT
  Age: 50 Year
  Sex: Male

DRUGS (3)
  1. PANITUMUMAB [Suspect]
     Indication: GASTROOESOPHAGEAL CANCER
     Dosage: UNK
     Dates: start: 20111012
  2. EPIRUBICIN [Concomitant]
     Indication: GASTROOESOPHAGEAL CANCER
     Dosage: UNK
     Dates: start: 20111012
  3. OXALIPLATIN [Concomitant]
     Indication: GASTROOESOPHAGEAL CANCER
     Dosage: UNK
     Dates: start: 20111012

REACTIONS (1)
  - DEEP VEIN THROMBOSIS [None]
